FAERS Safety Report 4617873-X (Version None)
Quarter: 2005Q1

REPORT INFORMATION
  Report Type: 
  Country: None (occurrence: None)
  Receive Date: 20050322
  Receipt Date: 20050314
  Transmission Date: 20050727
  Serious: Yes (Hospitalization, Other)
  Sender: FDA-Public Use
  Company Number: HQWYE103214MAR05

PATIENT
  Age: 54 Year
  Sex: Female

DRUGS (2)
  1. ADVIL COLD AND SINUS [Suspect]
     Indication: INFLUENZA
     Dosage: 3 TABLET 1X PER 1 DAY ORAL
     Route: 048
     Dates: start: 20050127, end: 20050130
  2. PRIMALAN (MEQUITAZINE) [Concomitant]

REACTIONS (3)
  - CYANOSIS [None]
  - EXTRAVASATION [None]
  - NECROSIS ISCHAEMIC [None]
